FAERS Safety Report 17431383 (Version 1)
Quarter: 2020Q1

REPORT INFORMATION
  Report Type: Spontaneous
  Country: CA (occurrence: CA)
  Receive Date: 20200218
  Receipt Date: 20200218
  Transmission Date: 20200409
  Serious: Yes (Other)
  Sender: FDA-Public Use
  Company Number: NVSC2020CA042438

PATIENT
  Age: 26 Year
  Sex: Female

DRUGS (7)
  1. TOPOTECAN HYDROCHLORIDE. [Suspect]
     Active Substance: TOPOTECAN HYDROCHLORIDE
     Indication: PARAGANGLION NEOPLASM MALIGNANT
     Route: 065
  2. PROCYTOX [Suspect]
     Active Substance: CYCLOPHOSPHAMIDE
     Indication: PARAGANGLION NEOPLASM MALIGNANT
     Route: 065
  3. AFINITOR [Suspect]
     Active Substance: EVEROLIMUS
     Indication: PARAGANGLION NEOPLASM MALIGNANT
     Route: 065
  4. SUNITINIB MALATE. [Suspect]
     Active Substance: SUNITINIB MALATE
     Indication: PARAGANGLION NEOPLASM MALIGNANT
     Route: 065
  5. TEMOZOLOMIDE. [Suspect]
     Active Substance: TEMOZOLOMIDE
     Indication: PARAGANGLION NEOPLASM MALIGNANT
     Route: 065
  6. VANDETANIB. [Suspect]
     Active Substance: VANDETANIB
     Indication: PARAGANGLION NEOPLASM MALIGNANT
     Route: 065
  7. UROMITEXAN [Suspect]
     Active Substance: MESNA
     Indication: PARAGANGLION NEOPLASM MALIGNANT
     Route: 065

REACTIONS (4)
  - Pancytopenia [Unknown]
  - Insomnia [Unknown]
  - Headache [Unknown]
  - Neoplasm progression [Unknown]
